FAERS Safety Report 16403538 (Version 9)
Quarter: 2022Q1

REPORT INFORMATION
  Report Type: Spontaneous
  Country: PT (occurrence: PT)
  Receive Date: 20190607
  Receipt Date: 20220317
  Transmission Date: 20220423
  Serious: Yes (Other)
  Sender: FDA-Public Use
  Company Number: None

PATIENT
  Age: 74 Year
  Sex: Female

DRUGS (3)
  1. METFORMIN [Interacting]
     Active Substance: METFORMIN HYDROCHLORIDE
     Indication: Diabetes mellitus
     Dosage: UNK
     Route: 065
  2. SIMVASTATIN [Interacting]
     Active Substance: SIMVASTATIN
     Indication: Product used for unknown indication
     Dosage: UNK
     Route: 048
  3. COBAMAMIDE [Concomitant]
     Active Substance: COBAMAMIDE
     Indication: Vitamin B12 deficiency
     Dosage: UNK
     Route: 030

REACTIONS (10)
  - Helicobacter gastritis [Unknown]
  - Helicobacter infection [Unknown]
  - Chronic gastritis [Unknown]
  - Memory impairment [Unknown]
  - Disturbance in attention [Unknown]
  - Vitamin B12 deficiency [Unknown]
  - Asthenia [Unknown]
  - Drug interaction [Unknown]
  - Mean cell volume abnormal [Unknown]
  - Malabsorption [Unknown]
